FAERS Safety Report 4837474-8 (Version None)
Quarter: 2005Q4

REPORT INFORMATION
  Report Type: 
  Country: None (occurrence: None)
  Receive Date: 20051122
  Receipt Date: 20051111
  Transmission Date: 20060501
  Serious: Yes (Hospitalization)
  Sender: FDA-Public Use
  Company Number: 2005091156

PATIENT
  Age: 87 Year
  Sex: Female
  Weight: 57 kg

DRUGS (9)
  1. LIPITOR [Suspect]
     Indication: ILL-DEFINED DISORDER
     Dosage: 5 MG (1 IN 1 D), ORAL
     Route: 048
     Dates: start: 20040801, end: 20050612
  2. DIGOXIN [Concomitant]
  3. ASPARA-CA (ASPARTATE CALCIUM) [Concomitant]
  4. MYONAL (EPERISONE HYDROCHLORIDE) [Concomitant]
  5. NORVASC [Concomitant]
  6. NATEGLINIDE [Concomitant]
  7. LANSOPRAZOLE [Concomitant]
  8. DEPAS (ETIZOLAM) [Concomitant]
  9. INSULIN [Concomitant]

REACTIONS (10)
  - ATRIAL FIBRILLATION [None]
  - C-REACTIVE PROTEIN INCREASED [None]
  - GAIT DISTURBANCE [None]
  - HAEMODIALYSIS [None]
  - PULMONARY CONGESTION [None]
  - PYREXIA [None]
  - RENAL FAILURE ACUTE [None]
  - RHABDOMYOLYSIS [None]
  - VIRAL INFECTION [None]
  - WHITE BLOOD CELL COUNT INCREASED [None]
